FAERS Safety Report 23141089 (Version 3)
Quarter: 2024Q1

REPORT INFORMATION
  Report Type: Spontaneous
  Country: ES (occurrence: ES)
  Receive Date: 20231103
  Receipt Date: 20240219
  Transmission Date: 20240409
  Serious: Yes (Other)
  Sender: FDA-Public Use
  Company Number: ES-ABBVIE-5458600

PATIENT
  Age: 63 Year
  Sex: Female

DRUGS (6)
  1. ADALIMUMAB [Suspect]
     Active Substance: ADALIMUMAB\ISOPROPYL ALCOHOL
     Indication: Sympathetic ophthalmia
     Dosage: UNK
     Route: 058
  2. ADALIMUMAB [Suspect]
     Active Substance: ADALIMUMAB\ISOPROPYL ALCOHOL
     Indication: Uveitic glaucoma
  3. CYCLOSPORINE [Suspect]
     Active Substance: CYCLOSPORINE
     Indication: Sympathetic ophthalmia
     Dosage: UNK
     Route: 065
  4. OZURDEX [Suspect]
     Active Substance: DEXAMETHASONE
     Indication: Uveitis
     Dosage: 0.7 MG, PRN
     Route: 031
  5. OZURDEX [Suspect]
     Active Substance: DEXAMETHASONE
     Indication: Macular oedema
  6. DEXAMETHASONE [Concomitant]
     Active Substance: DEXAMETHASONE
     Indication: Macular oedema
     Dosage: UNK

REACTIONS (6)
  - Tongue neoplasm malignant stage unspecified [Unknown]
  - Tongue neoplasm [Unknown]
  - Macular oedema [Unknown]
  - Uveitis [Unknown]
  - Off label use [Unknown]
  - Drug ineffective [Unknown]
